FAERS Safety Report 21295728 (Version 1)
Quarter: 2022Q3

REPORT INFORMATION
  Report Type: Spontaneous
  Country: CN (occurrence: CN)
  Receive Date: 20220906
  Receipt Date: 20220906
  Transmission Date: 20221026
  Serious: Yes (Hospitalization, Other)
  Sender: FDA-Public Use
  Company Number: None

PATIENT
  Age: 79 Year
  Sex: Female
  Weight: 45 kg

DRUGS (16)
  1. CYCLOPHOSPHAMIDE [Suspect]
     Active Substance: CYCLOPHOSPHAMIDE
     Indication: Non-Hodgkin^s lymphoma
     Dosage: 0.8 G, ONCE EVERY 21 DAYS, DILUTED WITH 0.9% NS 40 ML, R-CHOP REGIMEN
     Route: 042
     Dates: start: 20220819, end: 20220819
  2. CYCLOPHOSPHAMIDE [Suspect]
     Active Substance: CYCLOPHOSPHAMIDE
     Indication: B-cell lymphoma
  3. CYCLOPHOSPHAMIDE [Suspect]
     Active Substance: CYCLOPHOSPHAMIDE
     Indication: Neoplasm malignant
  4. SODIUM CHLORIDE [Suspect]
     Active Substance: SODIUM CHLORIDE
     Indication: Medication dilution
     Dosage: 40 ML, ONCE EVERY 21 DAYS, DILUTED IN CYCLOPHOSPHAMIDE 0.8 G, R-CHOP REGIMEN
     Route: 042
     Dates: start: 20220819, end: 20220819
  5. SODIUM CHLORIDE [Suspect]
     Active Substance: SODIUM CHLORIDE
     Dosage: 250 ML, ONCE EVERY 21 DAYS, DILUTED IN RITUXIMAB 0.5 G, R-CHOP REGIMEN
     Route: 041
     Dates: start: 20220818, end: 20220818
  6. SODIUM CHLORIDE [Suspect]
     Active Substance: SODIUM CHLORIDE
     Dosage: 250 ML, ONCE EVERY 21 DAYS, DILUTED WITH EPIRUBICIN HYDROCHLORIDE 50 MG, R-CHOP REGIMEN
     Route: 041
     Dates: start: 20220819, end: 20220819
  7. SODIUM CHLORIDE [Suspect]
     Active Substance: SODIUM CHLORIDE
     Dosage: 40 ML, ONCE EVERY 21 DAYS, DILUTED WITH VINDESINE SULFATE 2 MG, R-CHOP REGIMEN
     Route: 042
     Dates: start: 20220819, end: 20220819
  8. RITUXIMAB [Suspect]
     Active Substance: RITUXIMAB
     Indication: Non-Hodgkin^s lymphoma
     Dosage: 0.5 G, ONCE EVERY 21 DAYS, DILUTED WITH 0.9% NS 250 ML, R-CHOP REGIMEN
     Route: 041
     Dates: start: 20220818, end: 20220818
  9. RITUXIMAB [Suspect]
     Active Substance: RITUXIMAB
     Indication: B-cell lymphoma
  10. RITUXIMAB [Suspect]
     Active Substance: RITUXIMAB
     Indication: Neoplasm malignant
  11. EPIRUBICIN HYDROCHLORIDE [Suspect]
     Active Substance: EPIRUBICIN HYDROCHLORIDE
     Indication: Non-Hodgkin^s lymphoma
     Dosage: 50 MG, ONCE EVERY 21 DAYS, DILUTED WITH 0.9% NS 250 ML, R-CHOP REGIMEN
     Route: 041
     Dates: start: 20220819, end: 20220819
  12. EPIRUBICIN HYDROCHLORIDE [Suspect]
     Active Substance: EPIRUBICIN HYDROCHLORIDE
     Indication: B-cell lymphoma
  13. EPIRUBICIN HYDROCHLORIDE [Suspect]
     Active Substance: EPIRUBICIN HYDROCHLORIDE
     Indication: Neoplasm malignant
  14. VINDESINE SULFATE [Suspect]
     Active Substance: VINDESINE SULFATE
     Indication: Non-Hodgkin^s lymphoma
     Dosage: 2 MG, ONCE EVERY 21 DAYS, DILUTED WITH 0.9% NS 40 ML, R-CHOP REGIMEN
     Route: 042
     Dates: start: 20220819, end: 20220819
  15. VINDESINE SULFATE [Suspect]
     Active Substance: VINDESINE SULFATE
     Indication: B-cell lymphoma
  16. VINDESINE SULFATE [Suspect]
     Active Substance: VINDESINE SULFATE
     Indication: Neoplasm malignant

REACTIONS (1)
  - Myelosuppression [Recovering/Resolving]

NARRATIVE: CASE EVENT DATE: 20220825
